FAERS Safety Report 5351114-3 (Version None)
Quarter: 2007Q2

REPORT INFORMATION
  Report Type: 
  Country: None (occurrence: None)
  Receive Date: 20070608
  Receipt Date: 20070531
  Transmission Date: 20071010
  Serious: No
  Sender: FDA-Public Use
  Company Number: US-ASTRAZENECA-2006UW07956

PATIENT
  Age: 51 Year
  Sex: Female
  Weight: 90.9 kg

DRUGS (7)
  1. SEROQUEL [Suspect]
     Route: 048
     Dates: start: 19980101, end: 20030101
  2. ABILIFY [Concomitant]
     Dates: start: 20020101
  3. CLOZARIL [Concomitant]
     Dates: start: 20020101
  4. THORAZINE [Concomitant]
  5. AMITRIPTALENE [Concomitant]
  6. LEXAPRO [Concomitant]
  7. XANAX [Concomitant]
     Dosage: 2-10 MG

REACTIONS (1)
  - DIABETES MELLITUS [None]
